FAERS Safety Report 7398979-1 (Version None)
Quarter: 2011Q1

REPORT INFORMATION
  Report Type: 
  Country: None (occurrence: None)
  Receive Date: 20110328
  Receipt Date: 20110117
  Transmission Date: 20110831
  Serious: Yes (Other)
  Sender: FDA-Public Use
  Company Number: US-1184691

PATIENT
  Sex: Male

DRUGS (1)
  1. NEVANAC [Suspect]
     Dosage: (OPHTHALMIC)
     Route: 047
     Dates: start: 20080408

REACTIONS (1)
  - CORNEAL SCAR [None]
